FAERS Safety Report 5153941-4 (Version None)
Quarter: 2006Q4

REPORT INFORMATION
  Report Type: 
  Country: None (occurrence: None)
  Receive Date: 20061120
  Receipt Date: 20061109
  Transmission Date: 20070319
  Serious: Yes (Hospitalization)
  Sender: FDA-Public Use
  Company Number: NL-JNJFOC-20061103948

PATIENT
  Sex: Male
  Weight: 3.4 kg

DRUGS (6)
  1. INFLIXIMAB [Suspect]
  2. INFLIXIMAB [Suspect]
  3. INFLIXIMAB [Suspect]
  4. INFLIXIMAB [Suspect]
     Indication: DRUG EXPOSURE DURING PREGNANCY
  5. MERCAPTOPURINE [Concomitant]
  6. MERCAPTOPURINE [Concomitant]
     Indication: DRUG EXPOSURE DURING PREGNANCY

REACTIONS (2)
  - PREMATURE BABY [None]
  - RESPIRATORY DISTRESS [None]
